FAERS Safety Report 9397102 (Version 1)
Quarter: 2013Q3

REPORT INFORMATION
  Report Type: Spontaneous
  Country: FR (occurrence: FR)
  Receive Date: 20130712
  Receipt Date: 20130712
  Transmission Date: 20140515
  Serious: Yes (Hospitalization)
  Sender: FDA-Public Use
  Company Number: FR-AMGEN-FRASP2013047774

PATIENT
  Age: 53 Year
  Sex: Female

DRUGS (3)
  1. NPLATE [Suspect]
     Indication: IMMUNE THROMBOCYTOPENIC PURPURA
     Dosage: 250 MUG, QWK
     Route: 058
  2. SECTRAL [Suspect]
     Dosage: UNK
     Route: 048
  3. VENLAFAXINE [Suspect]
     Indication: DEPRESSION
     Route: 048

REACTIONS (1)
  - Carpal tunnel syndrome [Not Recovered/Not Resolved]
